FAERS Safety Report 11053777 (Version 2)
Quarter: 2015Q2

REPORT INFORMATION
  Report Type: Spontaneous
  Country: DE (occurrence: DE)
  Receive Date: 20150421
  Receipt Date: 20150527
  Transmission Date: 20150821
  Serious: Yes (Other)
  Sender: FDA-Public Use
  Company Number: PHHY2015DE047493

PATIENT
  Age: 53 Year
  Sex: Female

DRUGS (1)
  1. RASILEZ [Suspect]
     Active Substance: ALISKIREN
     Indication: PRODUCT USED FOR UNKNOWN INDICATION
     Dosage: 150 MG, UNK
     Route: 065
     Dates: end: 201504

REACTIONS (7)
  - Lipids increased [Unknown]
  - Blood triglycerides increased [Unknown]
  - Local swelling [Recovered/Resolved]
  - Arthralgia [Unknown]
  - Hypothyroidism [Unknown]
  - Pain in extremity [Unknown]
  - Blood glucose fluctuation [Unknown]
